FAERS Safety Report 7305418-5 (Version None)
Quarter: 2011Q1

REPORT INFORMATION
  Report Type: 
  Country: None (occurrence: None)
  Receive Date: 20110222
  Receipt Date: 20110217
  Transmission Date: 20110831
  Serious: Yes (Other)
  Sender: FDA-Public Use
  Company Number: GB-PFIZER INC-2011036072

PATIENT
  Age: 75 Year
  Sex: Female
  Weight: 54 kg

DRUGS (4)
  1. AMLODIPINE BESYLATE [Suspect]
     Indication: HYPERTENSION
     Dosage: 5 MG, 1X/DAY
  2. RIVAROXABAN [Suspect]
     Indication: KNEE ARTHROPLASTY
     Dosage: UNK
  3. RAMIPRIL [Concomitant]
     Indication: HYPERTENSION
     Dosage: 5 MG, UNK
  4. RIVAROXABAN [Suspect]
     Indication: THROMBOSIS PROPHYLAXIS

REACTIONS (1)
  - DEEP VEIN THROMBOSIS [None]
